FAERS Safety Report 5590821-4 (Version None)
Quarter: 2008Q1

REPORT INFORMATION
  Report Type: 
  Country: None (occurrence: None)
  Receive Date: 20080110
  Receipt Date: 20080103
  Transmission Date: 20080703
  Serious: Yes (Life-Threatening)
  Sender: FDA-Public Use
  Company Number: 2008AL000082

PATIENT
  Age: 62 Year
  Sex: Male

DRUGS (2)
  1. CARBAMAZEPINE TABLET USP, 200 MG (PUREPAC) (CARBAMAZEPINE TABLETS USP, [Suspect]
  2. PHENYTOIN [Suspect]

REACTIONS (2)
  - BACTERAEMIA [None]
  - DRUG RASH WITH EOSINOPHILIA AND SYSTEMIC SYMPTOMS [None]
